FAERS Safety Report 6562012-1 (Version None)
Quarter: 2010Q1

REPORT INFORMATION
  Report Type: 
  Country: None (occurrence: None)
  Receive Date: 20100130
  Receipt Date: 20091229
  Transmission Date: 20100710
  Serious: No
  Sender: FDA-Public Use
  Company Number: PR-ABBOTT-09P-131-0612545-00

PATIENT
  Sex: Female
  Weight: 77.18 kg

DRUGS (6)
  1. HUMIRA [Suspect]
     Indication: CROHN'S DISEASE
     Route: 058
     Dates: start: 20091130, end: 20091201
  2. HUMIRA [Suspect]
     Route: 058
     Dates: start: 20091230
  3. PREDNISONE [Concomitant]
     Indication: CROHN'S DISEASE
     Route: 048
     Dates: start: 20080101
  4. PERCOCET [Concomitant]
     Indication: PAIN MANAGEMENT
     Dosage: 5/325 MGH
     Route: 048
  5. XANAX [Concomitant]
     Indication: NERVOUSNESS
     Route: 048
  6. PAXIL [Concomitant]
     Indication: NERVOUSNESS
     Route: 048

REACTIONS (4)
  - BRONCHITIS [None]
  - COUGH [None]
  - INCREASED UPPER AIRWAY SECRETION [None]
  - PYREXIA [None]
